FAERS Safety Report 6335649-2 (Version None)
Quarter: 2009Q3

REPORT INFORMATION
  Report Type: 
  Country: None (occurrence: None)
  Receive Date: 20090826
  Receipt Date: 20090812
  Transmission Date: 20100115
  Serious: Yes (Hospitalization, Other)
  Sender: FDA-Public Use
  Company Number: 2009AP002864

PATIENT
  Age: 19 Year
  Sex: Female

DRUGS (3)
  1. CARBAMAZEPINE [Suspect]
     Indication: BORDERLINE PERSONALITY DISORDER
     Dosage: 400 MG;QD ; 800 MG;QD
  2. ZUCLOPENTHIXOL ACETATE             (ZUCLOPENTHIXOL ACETATE) [Concomitant]
  3. CALCIUM GLUCONATE [Concomitant]

REACTIONS (6)
  - ASTHENIA [None]
  - COUGH [None]
  - DRUG HYPERSENSITIVITY [None]
  - HEADACHE [None]
  - PYREXIA [None]
  - TOXIC SKIN ERUPTION [None]
